FAERS Safety Report 4583427-7 (Version None)
Quarter: 2005Q1

REPORT INFORMATION
  Report Type: 
  Country: None (occurrence: None)
  Receive Date: 20050211
  Receipt Date: 20050202
  Transmission Date: 20050727
  Serious: Yes (Other)
  Sender: FDA-Public Use
  Company Number: 2005025225

PATIENT
  Age: 65 Year
  Sex: Male

DRUGS (1)
  1. TAHOR (ATORVASTATIN) [Suspect]
     Indication: ILL-DEFINED DISORDER
     Dosage: 10 MG (1 IN 1 D)

REACTIONS (3)
  - ERECTILE DYSFUNCTION [None]
  - HAEMATOCHEZIA [None]
  - LARYNGEAL OEDEMA [None]
